FAERS Safety Report 6134325-9 (Version None)
Quarter: 2009Q1

REPORT INFORMATION
  Report Type: 
  Country: None (occurrence: None)
  Receive Date: 20090327
  Receipt Date: 20090318
  Transmission Date: 20090719
  Serious: Yes (Hospitalization, Other)
  Sender: FDA-Public Use
  Company Number: GB-RANBAXY-2008RR-16933

PATIENT
  Age: 73 Year
  Sex: Male

DRUGS (6)
  1. SIMVASTATIN [Suspect]
     Route: 048
  2. FUCIDINE CAP [Suspect]
     Indication: SINUS DISORDER
     Route: 065
  3. FUCIDINE CAP [Suspect]
     Indication: INFECTION
  4. FUCIDINE CAP [Suspect]
     Indication: DEFORMITY THORAX
  5. ASPIRIN [Concomitant]
     Route: 065
  6. OMEPRAZOLE [Concomitant]
     Route: 065

REACTIONS (3)
  - DRUG INTERACTION [None]
  - MYOGLOBINURIA [None]
  - RHABDOMYOLYSIS [None]
